FAERS Safety Report 8759162 (Version 1)
Quarter: 2012Q4

REPORT INFORMATION
  Report Type: 
  Country: AT (occurrence: AT)
  Receive Date: 20120829
  Receipt Date: 20120829
  Transmission Date: 20130627
  Serious: Yes (Other)
  Sender: FDA-Public Use
  Company Number: AT-CELGENEUS-009-50794-12082163

PATIENT
  Age: 83 Year
  Sex: Female

DRUGS (1)
  1. VIDAZA [Suspect]
     Indication: MDS
     Route: 065

REACTIONS (1)
  - Haemolysis [Unknown]
